FAERS Safety Report 6303819-5 (Version None)
Quarter: 2009Q3

REPORT INFORMATION
  Report Type: 
  Country: None (occurrence: None)
  Receive Date: 20090805
  Receipt Date: 20090728
  Transmission Date: 20100115
  Serious: Yes (Other)
  Sender: FDA-Public Use
  Company Number: CHPA2009US16109

PATIENT

DRUGS (3)
  1. FERROUS SULFATE TAB [Suspect]
     Indication: BLOOD IRON
     Dosage: 160 MG, QD, ORAL; ON AND OFF, ORAL
     Route: 048
     Dates: start: 20090701, end: 20090701
  2. FERROUS SULFATE TAB [Suspect]
     Indication: BLOOD IRON
     Dosage: 160 MG, QD, ORAL; ON AND OFF, ORAL
     Route: 048
  3. NEXIUM [Concomitant]

REACTIONS (2)
  - DIARRHOEA [None]
  - KNEE ARTHROPLASTY [None]
